FAERS Safety Report 25743851 (Version 1)
Quarter: 2025Q3

REPORT INFORMATION
  Report Type: Spontaneous
  Country: CN (occurrence: CN)
  Receive Date: 20250831
  Receipt Date: 20250831
  Transmission Date: 20251021
  Serious: Yes (Hospitalization)
  Sender: ABBVIE
  Company Number: CN-PFIZER INC-PV202500102868

PATIENT
  Age: 82 Year
  Sex: Male
  Weight: 42 kg

DRUGS (3)
  1. AVIBACTAM SODIUM\CEFTAZIDIME [Suspect]
     Active Substance: AVIBACTAM SODIUM\CEFTAZIDIME
     Indication: Pyrexia
     Route: 041
     Dates: start: 20250808, end: 20250822
  2. SODIUM CHLORIDE [Concomitant]
     Active Substance: SODIUM CHLORIDE
     Indication: Pneumonia
     Route: 041
     Dates: start: 20250808, end: 20250822
  3. AZTREONAM [Suspect]
     Active Substance: AZTREONAM
     Indication: Respiratory failure
     Route: 041
     Dates: start: 20250808, end: 20250822

REACTIONS (2)
  - White blood cell count decreased [Recovering/Resolving]
  - Neutrophil count decreased [Recovering/Resolving]

NARRATIVE: CASE EVENT DATE: 20250822
